FAERS Safety Report 7815488-3 (Version None)
Quarter: 2011Q4

REPORT INFORMATION
  Report Type: 
  Country: None (occurrence: None)
  Receive Date: 20111014
  Receipt Date: 20111012
  Transmission Date: 20120403
  Serious: Yes (Hospitalization)
  Sender: FDA-Public Use
  Company Number: PHEH2011US06668

PATIENT
  Sex: Female
  Weight: 58.957 kg

DRUGS (1)
  1. EXJADE [Suspect]
     Dosage: 1000 MG, QD
     Route: 048
     Dates: start: 20110922

REACTIONS (2)
  - DEHYDRATION [None]
  - ABDOMINAL DISCOMFORT [None]
